FAERS Safety Report 6004251-4 (Version None)
Quarter: 2008Q4

REPORT INFORMATION
  Report Type: 
  Country: None (occurrence: None)
  Receive Date: 20081216
  Receipt Date: 20081209
  Transmission Date: 20090506
  Serious: Yes (Other)
  Sender: FDA-Public Use
  Company Number: US-PFIZER INC-2004050121

PATIENT
  Sex: Male
  Weight: 81.65 kg

DRUGS (4)
  1. VIAGRA [Suspect]
     Indication: ERECTILE DYSFUNCTION
     Dosage: 50 MG, UNK
     Route: 048
     Dates: start: 20040601
  2. ANTIHYPERTENSIVES [Concomitant]
     Route: 048
  3. LANSOPRAZOLE [Concomitant]
     Route: 048
  4. VITAMINS [Concomitant]
     Route: 048

REACTIONS (2)
  - BLINDNESS [None]
  - DRUG INEFFECTIVE [None]
